FAERS Safety Report 4533021-9 (Version None)
Quarter: 2004Q4

REPORT INFORMATION
  Report Type: 
  Country: None (occurrence: None)
  Receive Date: 20041221
  Receipt Date: 20041213
  Transmission Date: 20050328
  Serious: Yes (Death, Hospitalization)
  Sender: FDA-Public Use
  Company Number: KR-BRISTOL-MYERS SQUIBB COMPANY-12793899

PATIENT
  Age: 65 Year
  Sex: Female

DRUGS (3)
  1. CISPLATIN [Suspect]
     Indication: NON-SMALL CELL LUNG CANCER
     Route: 042
  2. ETOPOSIDE [Suspect]
     Indication: NON-SMALL CELL LUNG CANCER
     Route: 042
  3. FLUOROURACIL [Suspect]
     Indication: NON-SMALL CELL LUNG CANCER
     Route: 042

REACTIONS (4)
  - DEHYDRATION [None]
  - ELECTROCARDIOGRAM ST SEGMENT ELEVATION [None]
  - NAUSEA [None]
  - VOMITING [None]
